FAERS Safety Report 10280511 (Version 2)
Quarter: 2014Q3

REPORT INFORMATION
  Report Type: Spontaneous
  Country: US (occurrence: US)
  Receive Date: 20140707
  Receipt Date: 20140723
  Transmission Date: 20150326
  Serious: Yes (Other)
  Sender: FDA-Public Use
  Company Number: US-PFIZER INC-2014184941

PATIENT
  Age: 64 Year
  Sex: Female
  Weight: 65.76 kg

DRUGS (1)
  1. LYRICA [Suspect]
     Active Substance: PREGABALIN
     Dosage: UNK

REACTIONS (3)
  - Gait disturbance [Unknown]
  - Malaise [Unknown]
  - Activities of daily living impaired [Unknown]
